FAERS Safety Report 11858401 (Version 1)
Quarter: 2015Q4

REPORT INFORMATION
  Report Type: Report from Study
  Country: US (occurrence: US)
  Receive Date: 20151222
  Receipt Date: 20151222
  Transmission Date: 20160305
  Serious: Yes (Other)
  Sender: FDA-Public Use
  Company Number: US-AMGEN-USASL2015135081

PATIENT
  Age: 46 Year
  Sex: Male

DRUGS (1)
  1. ENBREL [Suspect]
     Active Substance: ETANERCEPT
     Indication: ANKYLOSING SPONDYLITIS
     Dosage: 50 MG, UNK
     Route: 065
     Dates: start: 20110526

REACTIONS (6)
  - Deafness [Unknown]
  - Tooth loss [Unknown]
  - Neoplasm [Unknown]
  - Feeling abnormal [Unknown]
  - Unevaluable event [Unknown]
  - Vitamin D deficiency [Unknown]
